FAERS Safety Report 24131407 (Version 1)
Quarter: 2024Q3

REPORT INFORMATION
  Report Type: Spontaneous
  Country: US (occurrence: US)
  Receive Date: 20240724
  Receipt Date: 20240724
  Transmission Date: 20241017
  Serious: No
  Sender: BRECKENRIDGE
  Company Number: US-Breckenridge Pharmaceutical, Inc.-2159498

PATIENT
  Sex: Female

DRUGS (1)
  1. DULOXETINE HYDROCHLORIDE [Suspect]
     Active Substance: DULOXETINE HYDROCHLORIDE
     Route: 048

REACTIONS (3)
  - Diarrhoea [Unknown]
  - Malaise [Unknown]
  - Abdominal discomfort [Unknown]
